FAERS Safety Report 8316439-8 (Version None)
Quarter: 2012Q2

REPORT INFORMATION
  Report Type: 
  Country: None (occurrence: None)
  Receive Date: 20120425
  Receipt Date: 20120425
  Transmission Date: 20120825
  Serious: Yes (Other)
  Sender: FDA-Public Use
  Company Number: None

PATIENT
  Age: 50 Year
  Sex: Female
  Weight: 68.0396 kg

DRUGS (2)
  1. BACLOFEN [Suspect]
     Indication: MUSCLE SPASMS
     Dosage: 3 TABS A DAY WEEK OR MORE
     Dates: start: 20120320
  2. BACLOFEN [Suspect]
     Indication: SPINAL COLUMN STENOSIS
     Dosage: 3 TABS A DAY WEEK OR MORE
     Dates: start: 20120320

REACTIONS (3)
  - DIARRHOEA [None]
  - MUSCLE TIGHTNESS [None]
  - MUSCLE SPASMS [None]
